FAERS Safety Report 11752267 (Version 1)
Quarter: 2015Q4

REPORT INFORMATION
  Report Type: Spontaneous
  Country: CA (occurrence: CA)
  Receive Date: 20151118
  Receipt Date: 20151118
  Transmission Date: 20160304
  Serious: Yes (Other)
  Sender: FDA-Public Use
  Company Number: CA-FRESENIUS KABI-FK201505897

PATIENT
  Age: 49 Year
  Sex: Male

DRUGS (3)
  1. ADENOSINE INJECTION (MANUFACTURER UNKNOWN) (ADEOSINE) (ADENOSINE) [Suspect]
     Active Substance: ADENOSINE
     Route: 022
  2. ADENOSINE INJECTION (MANUFACTURER UNKNOWN) (ADEOSINE) (ADENOSINE) [Suspect]
     Active Substance: ADENOSINE
     Route: 022
  3. ADENOSINE INJECTION (MANUFACTURER UNKNOWN) (ADEOSINE) (ADENOSINE) [Suspect]
     Active Substance: ADENOSINE
     Indication: CARDIAC FUNCTION TEST
     Route: 022

REACTIONS (2)
  - Ventricular fibrillation [Recovered/Resolved]
  - Intentional product use issue [Recovered/Resolved]
